FAERS Safety Report 17544400 (Version 2)
Quarter: 2020Q1

REPORT INFORMATION
  Report Type: Spontaneous
  Country: US (occurrence: US)
  Receive Date: 20200316
  Receipt Date: 20200320
  Transmission Date: 20200409
  Serious: Yes (Hospitalization)
  Sender: FDA-Public Use
  Company Number: US-JNJFOC-20200307212

PATIENT
  Age: 61 Year
  Sex: Male
  Weight: 108.51 kg

DRUGS (2)
  1. RIVAROXABAN [Suspect]
     Active Substance: RIVAROXABAN
     Indication: PULMONARY EMBOLISM
  2. RIVAROXABAN [Suspect]
     Active Substance: RIVAROXABAN
     Indication: DEEP VEIN THROMBOSIS
     Route: 048
     Dates: start: 20200228

REACTIONS (4)
  - Pulmonary embolism [Unknown]
  - Treatment failure [Unknown]
  - Pulmonary infarction [Unknown]
  - Right ventricular dysfunction [Unknown]

NARRATIVE: CASE EVENT DATE: 202003
